FAERS Safety Report 6940764-6 (Version None)
Quarter: 2010Q3

REPORT INFORMATION
  Report Type: 
  Country: None (occurrence: None)
  Receive Date: 20100817
  Receipt Date: 20100422
  Transmission Date: 20110219
  Serious: Yes (Hospitalization, Other)
  Sender: FDA-Public Use
  Company Number: 20108552

PATIENT
  Age: 20 Year
  Sex: Male

DRUGS (1)
  1. LIORESAL [Suspect]
     Indication: MUSCLE SPASTICITY
     Dosage: UNK MCG, DAILY, INTRATHECAL
     Route: 037

REACTIONS (7)
  - MEDICAL DEVICE CHANGE [None]
  - MEDICAL DEVICE COMPLICATION [None]
  - MEDICAL DEVICE REMOVAL [None]
  - OVERDOSE [None]
  - STAPHYLOCOCCAL INFECTION [None]
  - THERAPEUTIC RESPONSE DECREASED [None]
  - THERAPY REGIMEN CHANGED [None]
